FAERS Safety Report 6562039-X (Version None)
Quarter: 2010Q1

REPORT INFORMATION
  Report Type: 
  Country: None (occurrence: None)
  Receive Date: 20100130
  Receipt Date: 20091106
  Transmission Date: 20100710
  Serious: No
  Sender: FDA-Public Use
  Company Number: US-ABBOTT-09P-163-0599726-00

PATIENT
  Sex: Female
  Weight: 104.42 kg

DRUGS (4)
  1. HUMIRA [Suspect]
     Indication: PSORIASIS
     Dates: start: 20090921
  2. ATARAX [Concomitant]
     Indication: PRURITUS
  3. SIMVASTATIN [Concomitant]
     Indication: DRUG USE FOR UNKNOWN INDICATION
     Route: 048
  4. TRIAMCINOLONE OINTMENT 1% [Concomitant]
     Indication: PSORIASIS

REACTIONS (2)
  - PSORIASIS [None]
  - SKIN FISSURES [None]
